FAERS Safety Report 10280745 (Version 1)
Quarter: 2014Q3

REPORT INFORMATION
  Report Type: Spontaneous
  Country: US (occurrence: None)
  Receive Date: 20140702
  Receipt Date: 20140702
  Transmission Date: 20150326
  Serious: Yes (Death, Hospitalization)
  Sender: FDA-Public Use
  Company Number: DAV-AE-PTU-14-01

PATIENT
  Age: 43 Year
  Sex: Female

DRUGS (1)
  1. PROPYLTHIOURACIL. [Suspect]
     Active Substance: PROPYLTHIOURACIL
     Indication: BASEDOW^S DISEASE

REACTIONS (7)
  - Pneumonia [None]
  - Mental status changes [None]
  - Renal failure acute [None]
  - Multi-organ failure [None]
  - Respiratory failure [None]
  - Hepatic failure [None]
  - Glomerulonephritis rapidly progressive [None]
